FAERS Safety Report 4304824-0 (Version None)
Quarter: 2004Q1

REPORT INFORMATION
  Report Type: 
  Country: None (occurrence: None)
  Receive Date: 20040226
  Receipt Date: 20031217
  Transmission Date: 20041129
  Serious: Yes (Hospitalization)
  Sender: FDA-Public Use
  Company Number: PHRM2003FR03354

PATIENT
  Age: 11 Year
  Sex: Female
  Weight: 22 kg

DRUGS (5)
  1. TRILEPTAL [Suspect]
     Indication: MEDICATION ERROR
     Dosage: 1200 MG, BID
     Route: 048
     Dates: end: 20031101
  2. KEPPRA [Concomitant]
     Route: 048
  3. ARTANE [Concomitant]
     Route: 048
  4. SIBELIUM [Concomitant]
     Route: 048
  5. DEPAKENE [Concomitant]
     Route: 048

REACTIONS (4)
  - ACCIDENTAL OVERDOSE [None]
  - ELECTROENCEPHALOGRAM ABNORMAL [None]
  - PARADOXICAL DRUG REACTION [None]
  - STATUS EPILEPTICUS [None]
